FAERS Safety Report 8598288-9 (Version None)
Quarter: 2012Q3

REPORT INFORMATION
  Report Type: 
  Country: None (occurrence: None)
  Receive Date: 20120816
  Receipt Date: 20120801
  Transmission Date: 20120928
  Serious: Yes (Death)
  Sender: FDA-Public Use
  Company Number: CN-SANOFI-AVENTIS-2012SA037726

PATIENT
  Age: 56 Year
  Sex: Female
  Weight: 42 kg

DRUGS (6)
  1. FLUOROURACIL [Concomitant]
     Dosage: DOSE: 400MG AND 2400 MG/M2 OVER 46 HOURS
     Route: 041
  2. OXALIPLATIN [Suspect]
     Indication: COLORECTAL CANCER
     Route: 041
  3. OXALIPLATIN [Suspect]
     Route: 041
  4. FLUOROURACIL [Concomitant]
     Indication: COLORECTAL CANCER
     Dosage: DOSE: 400MG AND 2400 MG/M2 OVER 46 HOURS
     Route: 041
  5. LEUCOVORIN CALCIUM [Concomitant]
     Indication: COLORECTAL CANCER
     Route: 041
  6. LEUCOVORIN CALCIUM [Concomitant]
     Route: 041

REACTIONS (5)
  - ABDOMINAL PAIN [None]
  - LOSS OF CONSCIOUSNESS [None]
  - ACIDOSIS [None]
  - INTESTINAL PERFORATION [None]
  - HYPERPYREXIA [None]
